FAERS Safety Report 9027942 (Version 2)
Quarter: 2013Q2

REPORT INFORMATION
  Report Type: Spontaneous
  Country: US (occurrence: US)
  Receive Date: 20130123
  Receipt Date: 20130409
  Transmission Date: 20140414
  Serious: Yes (Other)
  Sender: FDA-Public Use
  Company Number: US-PERRIGO-12US003340

PATIENT
  Age: 32 Year
  Sex: Female
  Weight: 49.89 kg

DRUGS (4)
  1. TIOCONAZOLE [Suspect]
     Indication: VULVOVAGINAL MYCOTIC INFECTION
     Dosage: ONE APPLICATION, SINGLE
     Route: 067
     Dates: start: 20120415, end: 20120415
  2. TIOCONAZOLE [Suspect]
     Indication: VULVOVAGINAL DISCOMFORT
  3. TIOCONAZOLE [Suspect]
     Indication: PRURITUS
  4. TIOCONAZOLE [Suspect]
     Indication: VAGINAL DISCHARGE

REACTIONS (4)
  - Abortion spontaneous [Unknown]
  - Exposure during pregnancy [Unknown]
  - Vulvovaginal swelling [Unknown]
  - Condition aggravated [Unknown]
